FAERS Safety Report 10516257 (Version 2)
Quarter: 2014Q4

REPORT INFORMATION
  Report Type: Report from Study
  Country: US (occurrence: US)
  Receive Date: 20141014
  Receipt Date: 20141014
  Transmission Date: 20150528
  Serious: Yes (Other)
  Sender: FDA-Public Use
  Company Number: US-ALEXION PHARMACEUTICALS INC-A201305762

PATIENT

DRUGS (1)
  1. SOLIRIS [Suspect]
     Active Substance: ECULIZUMAB
     Indication: PAROXYSMAL NOCTURNAL HAEMOGLOBINURIA

REACTIONS (5)
  - Dizziness [Unknown]
  - Biopsy bone marrow abnormal [Unknown]
  - Biopsy bone marrow [Recovered/Resolved]
  - Hypertension [Unknown]
  - Central venous catheterisation [Recovered/Resolved]
